FAERS Safety Report 6895474-0 (Version None)
Quarter: 2010Q3

REPORT INFORMATION
  Report Type: 
  Country: None (occurrence: None)
  Receive Date: 20100802
  Receipt Date: 20100728
  Transmission Date: 20110219
  Serious: Yes (Hospitalization)
  Sender: FDA-Public Use
  Company Number: FR-BRISTOL-MYERS SQUIBB COMPANY-15208341

PATIENT
  Age: 62 Year
  Sex: Female

DRUGS (16)
  1. BICNU PWDR FOR INJ [Suspect]
     Indication: LYMPHOMA
     Route: 042
     Dates: end: 20070201
  2. ETOPOSIDE [Suspect]
     Indication: LYMPHOMA
     Route: 042
     Dates: end: 20070701
  3. METHOTREXATE [Suspect]
     Indication: LYMPHOMA
     Dosage: 6 DF PER DAY EPIDURALLY UNTIL FEB2007
     Route: 042
     Dates: end: 20070701
  4. METHYLPREDNISOLONE [Suspect]
     Indication: LYMPHOMA
     Route: 042
     Dates: end: 20070701
  5. CYTARABINE [Suspect]
     Indication: LYMPHOMA
     Route: 008
     Dates: end: 20070701
  6. DEPO-MEDROL [Suspect]
     Indication: LYMPHOMA
     Route: 008
     Dates: end: 20070701
  7. LEVOTHYROXINE SODIUM [Concomitant]
  8. TIRATRICOL [Concomitant]
  9. BISOPROLOL FUMARATE [Concomitant]
  10. PERINDOPRIL ERBUMINE [Concomitant]
  11. NORFLOXACIN [Concomitant]
     Indication: URINARY TRACT INFECTION
  12. OROCAL D3 [Concomitant]
  13. LYRICA [Concomitant]
  14. CLONAZEPAM [Concomitant]
  15. FORLAX [Concomitant]
  16. SPAGULAX [Concomitant]

REACTIONS (2)
  - LEUKOENCEPHALOPATHY [None]
  - SENSORIMOTOR DISORDER [None]
